FAERS Safety Report 6646190-1 (Version None)
Quarter: 2010Q1

REPORT INFORMATION
  Report Type: 
  Country: None (occurrence: None)
  Receive Date: 20100323
  Receipt Date: 20100310
  Transmission Date: 20100710
  Serious: Yes (Other)
  Sender: FDA-Public Use
  Company Number: US-ROCHE-679602

PATIENT
  Sex: Female
  Weight: 63.2 kg

DRUGS (7)
  1. BEVACIZUMAB [Suspect]
     Indication: OVARIAN CANCER
     Route: 042
     Dates: start: 20090129
  2. BEVACIZUMAB [Suspect]
     Dosage: DOSE FORM: INFUSION, INFUSION DURATION: 30 MINUTES.
     Route: 042
     Dates: start: 20091002, end: 20100112
  3. ATIVAN [Concomitant]
     Dates: start: 20091023
  4. LISINOPRIL [Concomitant]
     Route: 048
     Dates: start: 20091002, end: 20100223
  5. M.V.I. [Concomitant]
     Route: 048
     Dates: start: 20061229
  6. B COMPLEX VITAMINS [Concomitant]
     Route: 048
     Dates: start: 20061229
  7. VITAMIN E [Concomitant]
     Route: 048
     Dates: start: 20061229

REACTIONS (1)
  - SMALL INTESTINAL OBSTRUCTION [None]
